FAERS Safety Report 12744308 (Version 1)
Quarter: 2016Q3

REPORT INFORMATION
  Report Type: Spontaneous
  Country: US (occurrence: US)
  Receive Date: 20160914
  Receipt Date: 20160914
  Transmission Date: 20161109
  Serious: No
  Sender: FDA-Public Use
  Company Number: US-TEVA-691913USA

PATIENT
  Sex: Female

DRUGS (2)
  1. NUVIGIL [Suspect]
     Active Substance: ARMODAFINIL
     Route: 065
  2. COPAXONE [Concomitant]
     Active Substance: GLATIRAMER ACETATE
     Route: 058

REACTIONS (1)
  - Initial insomnia [Not Recovered/Not Resolved]
